FAERS Safety Report 24219795 (Version 2)
Quarter: 2024Q3

REPORT INFORMATION
  Report Type: Spontaneous
  Country: JP (occurrence: JP)
  Receive Date: 20240817
  Receipt Date: 20240829
  Transmission Date: 20241016
  Serious: Yes (Other)
  Sender: SANOFI AVENTIS
  Company Number: JP-SA-2024SA241733

PATIENT
  Age: 80 Year
  Sex: Female

DRUGS (1)
  1. DUPIXENT [Suspect]
     Active Substance: DUPILUMAB
     Indication: Bronchopulmonary aspergillosis allergic
     Dosage: UNK
     Route: 058
     Dates: start: 2022, end: 2022

REACTIONS (7)
  - Bronchopulmonary aspergillosis allergic [Unknown]
  - Off label use [Unknown]
  - Fatigue [Unknown]
  - Cough [Unknown]
  - Sputum increased [Unknown]
  - Condition aggravated [Unknown]
  - Pulmonary mass [Unknown]
